FAERS Safety Report 20830045 (Version 2)
Quarter: 2022Q2

REPORT INFORMATION
  Report Type: Report from Study
  Country: US (occurrence: US)
  Receive Date: 20220514
  Receipt Date: 20220528
  Transmission Date: 20220721
  Serious: Yes (Hospitalization)
  Sender: FDA-Public Use
  Company Number: US-UNITED THERAPEUTICS-UNT-2022-010020

PATIENT
  Age: 9 Year
  Sex: Male
  Weight: 42 kg

DRUGS (8)
  1. UNITUXIN [Suspect]
     Active Substance: DINUTUXIMAB
     Indication: Ganglioneuroblastoma
     Dosage: 88.92 MG [TOTAL ADMINISTERED DOSE], CYCLICAL (DAY 2-5)
     Route: 041
     Dates: start: 20220413, end: 20220417
  2. MAGROLIMAB [Suspect]
     Active Substance: MAGROLIMAB
     Indication: Ganglioneuroblastoma
     Dosage: 1326.8 MG (30MG/KG)
     Route: 065
     Dates: start: 20220406, end: 20220412
  3. VITAMIN D2 [Concomitant]
     Active Substance: ERGOCALCIFEROL
     Indication: Product used for unknown indication
     Dosage: UNK
     Route: 065
  4. LEVOTHYROXINE SODIUM [Concomitant]
     Active Substance: LEVOTHYROXINE SODIUM
     Indication: Product used for unknown indication
     Dosage: UNK
     Route: 065
  5. LIDOCAINE AND PRILOCAINE [Concomitant]
     Active Substance: LIDOCAINE\PRILOCAINE
     Indication: Product used for unknown indication
     Dosage: UNK
     Route: 065
  6. ONDANSETRON [Concomitant]
     Active Substance: ONDANSETRON
     Indication: Product used for unknown indication
     Dosage: UNK
     Route: 065
  7. SCOPOLAMINE [Concomitant]
     Active Substance: SCOPOLAMINE
     Indication: Product used for unknown indication
     Dosage: UNK
     Route: 065
  8. SULFAMETHOXAZOLE AND TRIMETHOPRIM [Concomitant]
     Active Substance: SULFAMETHOXAZOLE\TRIMETHOPRIM
     Indication: Product used for unknown indication
     Dosage: UNK
     Route: 065

REACTIONS (1)
  - Serum sickness [Recovering/Resolving]

NARRATIVE: CASE EVENT DATE: 20220419
